FAERS Safety Report 11347297 (Version 8)
Quarter: 2016Q3

REPORT INFORMATION
  Report Type: Report from Study
  Country: JP (occurrence: JP)
  Receive Date: 20150806
  Receipt Date: 20160914
  Transmission Date: 20161109
  Serious: Yes (Death, Hospitalization, Other)
  Sender: FDA-Public Use
  Company Number: JP-EISAI MEDICAL RESEARCH-EC-2015-009398

PATIENT
  Age: 77 Year
  Sex: Female
  Weight: 49 kg

DRUGS (5)
  1. AZILVA [Concomitant]
     Active Substance: AZILSARTAN KAMEDOXOMIL
  2. LENVIMA [Suspect]
     Active Substance: LENVATINIB
     Indication: ANAPLASTIC THYROID CANCER
     Route: 048
     Dates: start: 20150611, end: 20150730
  3. HIRUDOID [Concomitant]
     Active Substance: GLYCOSAMINOGLYCANS
  4. LPZ [Concomitant]
  5. DOMEPERIDONE [Concomitant]

REACTIONS (7)
  - Fistula [Not Recovered/Not Resolved]
  - Hypertension [Recovering/Resolving]
  - Pharyngeal disorder [Not Recovered/Not Resolved]
  - Pneumonia aspiration [Recovered/Resolved]
  - Paralysis [Not Recovered/Not Resolved]
  - Dysphagia [Not Recovered/Not Resolved]
  - Malignant neoplasm progression [Fatal]

NARRATIVE: CASE EVENT DATE: 20150614
